FAERS Safety Report 5657682-6 (Version None)
Quarter: 2008Q1

REPORT INFORMATION
  Report Type: 
  Country: None (occurrence: None)
  Receive Date: 20080310
  Receipt Date: 20080304
  Transmission Date: 20080703
  Serious: Yes (Other)
  Sender: FDA-Public Use
  Company Number: NL-BOEHRINGER INGELHEIM GMBH, GERMANY-2008-BP-03175RO

PATIENT
  Age: 31 Year
  Sex: Female

DRUGS (3)
  1. FLUCONAZOLE [Suspect]
  2. IBUPROFEN [Concomitant]
  3. IUD WITH LEVONORGESTREL [Concomitant]

REACTIONS (1)
  - DRUG ERUPTION [None]
